FAERS Safety Report 16883383 (Version 3)
Quarter: 2019Q4

REPORT INFORMATION
  Report Type: Spontaneous
  Country: JP (occurrence: JP)
  Receive Date: 20191004
  Receipt Date: 20191119
  Transmission Date: 20200122
  Serious: Yes (Other)
  Sender: FDA-Public Use
  Company Number: JP-TEVA-2019-JP-006351J

PATIENT
  Age: 72 Year
  Sex: Female

DRUGS (4)
  1. OLMESARTAN OD [Concomitant]
     Active Substance: OLMESARTAN MEDOXOMIL
     Dosage: 20 MILLIGRAM DAILY;
     Route: 065
  2. RANITIDINE TABLET 150MG ^TAIYO^ [Suspect]
     Active Substance: RANITIDINE
     Indication: PRODUCT USED FOR UNKNOWN INDICATION
     Dosage: 300 MILLIGRAM DAILY;
     Route: 048
     Dates: end: 201909
  3. METGLUCO [Concomitant]
     Active Substance: METFORMIN HYDROCHLORIDE
     Route: 065
  4. VOGLIBOSE OD [Concomitant]
     Active Substance: VOGLIBOSE
     Dosage: .6 MILLIGRAM DAILY;
     Route: 065

REACTIONS (1)
  - Breast cancer [Unknown]
